FAERS Safety Report 22320038 (Version 2)
Quarter: 2023Q2

REPORT INFORMATION
  Report Type: Spontaneous
  Country: KW (occurrence: KW)
  Receive Date: 20230515
  Receipt Date: 20230519
  Transmission Date: 20230721
  Serious: Yes (Life-Threatening, Hospitalization)
  Sender: FDA-Public Use
  Company Number: KW-PFIZER INC-PV202300084642

PATIENT
  Age: 79 Year
  Sex: Female

DRUGS (20)
  1. ALDACTONE [Suspect]
     Active Substance: SPIRONOLACTONE
     Dosage: 25 MG /12.5 MG, DAILY EVERY MORNING
  2. ELIQUIS [Suspect]
     Active Substance: APIXABAN
     Indication: Cerebrovascular accident prophylaxis
     Dosage: 2.5 MG, 2X/DAY
     Route: 048
     Dates: start: 20230215
  3. ELIQUIS [Suspect]
     Active Substance: APIXABAN
     Dosage: 5 UNK
     Dates: start: 2023
  4. APRESOLINE HYDROCHLORIDE [Concomitant]
     Active Substance: HYDRALAZINE HYDROCHLORIDE
     Dosage: 25 MG, 2X/DAY
  5. ASPIRIN [Concomitant]
     Active Substance: ASPIRIN
     Dosage: 100 MG, 1X/DAY
  6. ATROVENT [Concomitant]
     Active Substance: IPRATROPIUM BROMIDE
     Dosage: 250 MCG 5 ML
  7. AUGMENTIN [Concomitant]
     Active Substance: AMOXICILLIN\CLAVULANATE POTASSIUM
     Dosage: 1 G 1 TABLET EVERY 12 HRS
  8. BEPANTHEN PLUS [CHLORHEXIDINE GLUCONATE;DEXPANTHENOL] [Concomitant]
     Dosage: 1 TOPICAL APPLICANT BID
  9. BISOPROLOL FUMARATE [Concomitant]
     Active Substance: BISOPROLOL FUMARATE
     Dosage: 10 MG, 1X/DAY EVERY MORNING
  10. DEXILANT [Concomitant]
     Active Substance: DEXLANSOPRAZOLE
     Dosage: 60 MG, 1X/DAY 1 CAPSULE OD.
  11. FUSIDIC ACID [Concomitant]
     Active Substance: FUSIDIC ACID
     Dosage: 1 TOPICAL APPLICANT BID
  12. LANTUS [Concomitant]
     Active Substance: INSULIN GLARGINE
     Dosage: 1000 IU/10 ML VIAL 10 UNT AT BEDTIME
  13. MEBO [Concomitant]
     Dosage: 1 TOPICAL APPLICANT OD
  14. REPARIL [DIETHYLAMINE SALICYLATE;ESCIN] [Concomitant]
     Dosage: 1 TOPICAL APPLICANT BID
  15. ZESTRIL [Concomitant]
     Active Substance: LISINOPRIL
     Dosage: 20 MG 1 TABLET AT BEDTIME
  16. DUSPATALIN RETARD [Concomitant]
     Dosage: 200 MG, 2X/DAY 1 CAPSULE BD
  17. JARDIANCE [Concomitant]
     Active Substance: EMPAGLIFLOZIN
     Dosage: 10 MG, 1X/DAY 1 TABLET EVERY MORNING
  18. LASIX [Concomitant]
     Active Substance: FUROSEMIDE
     Dosage: 40 MG, 1X/DAY 1 TABLET EVERY MORNING
  19. MOVICOL [Concomitant]
     Active Substance: POLYETHYLENE GLYCOL 3350\POTASSIUM CHLORIDE\SODIUM BICARBONATE\SODIUM CHLORIDE
     Dosage: 13.89 GM/SCH 1 SACHET AT BEDTIME
  20. ALLOPURINOL [Concomitant]
     Active Substance: ALLOPURINOL
     Dosage: 100 MG, 1X/DAY 1 TABLET DAILY

REACTIONS (4)
  - Cardiac failure [Unknown]
  - Pulmonary oedema [Unknown]
  - Mineral metabolism disorder [Unknown]
  - Renal function test abnormal [Unknown]

NARRATIVE: CASE EVENT DATE: 20230504
